FAERS Safety Report 7355310 (Version 4)
Quarter: 2015Q1

REPORT INFORMATION
  Report Type: Spontaneous
  Country: BG (occurrence: None)
  Receive Date: 20100330
  Receipt Date: 20150121
  Transmission Date: 20150721
  Serious: Yes (Hospitalization)
  Sender: FDA-Public Use
  Company Number: 2010000880

PATIENT
  Age: 57 Year
  Sex: Male

DRUGS (4)
  1. KREON (PANCREATIN) [Concomitant]
     Active Substance: PANCRELIPASE
  2. ERLOTINIB HCL [Suspect]
     Active Substance: ERLOTINIB HYDROCHLORIDE
     Indication: PANCREATIC CARCINOMA
     Dosage: QD, ORAL
     Route: 048
     Dates: start: 20091127, end: 20100312
  3. INSULATARD NPH HUMAN [Concomitant]
     Active Substance: INSULIN HUMAN
  4. TRAMADOL HYDROCHLORIDE. [Concomitant]
     Active Substance: TRAMADOL HYDROCHLORIDE

REACTIONS (1)
  - Cholangitis acute [None]

NARRATIVE: CASE EVENT DATE: 20100306
